FAERS Safety Report 6718359-9 (Version None)
Quarter: 2010Q2

REPORT INFORMATION
  Report Type: 
  Country: None (occurrence: None)
  Receive Date: 20100504
  Receipt Date: 20100423
  Transmission Date: 20101027
  Serious: Yes (Other)
  Sender: FDA-Public Use
  Company Number: 7002449

PATIENT
  Age: 53 Year
  Sex: Female
  Weight: 78 kg

DRUGS (3)
  1. REBIF [Suspect]
     Indication: MULTIPLE SCLEROSIS
     Dosage: 44 MCG, 3 IN 1 WK, SUBCUTANEOUS
     Route: 058
     Dates: start: 20070404
  2. LAMICTAL [Concomitant]
  3. KEPPRA-XR (LEVETIRACETAM) [Concomitant]

REACTIONS (4)
  - ARTHRITIS [None]
  - GROIN PAIN [None]
  - HYPOAESTHESIA [None]
  - OSTEONECROSIS [None]
